FAERS Safety Report 9648654 (Version 1)
Quarter: 2013Q4

REPORT INFORMATION
  Report Type: Spontaneous
  Country: US (occurrence: None)
  Receive Date: 20131025
  Receipt Date: 20131025
  Transmission Date: 20140711
  Serious: Yes (Hospitalization)
  Sender: FDA-Public Use
  Company Number: None

PATIENT
  Age: 50 Year
  Sex: Male
  Weight: 79.38 kg

DRUGS (9)
  1. CRESTOR [Suspect]
     Indication: BLOOD CHOLESTEROL
     Dosage: 20 MG, 1 PILL, ONCE DAILY, BY MOUTH
     Route: 048
     Dates: start: 20130730, end: 20130816
  2. SINGULAIR 10 [Concomitant]
  3. CITALPRAM 20 [Concomitant]
  4. OMEPROSOLE 10 [Concomitant]
  5. NIACIN [Concomitant]
  6. VITAMIN D [Concomitant]
  7. CALCIUM [Concomitant]
  8. MULTIVITAMIN [Concomitant]
  9. ASPIRIN 81MG [Concomitant]

REACTIONS (1)
  - Presyncope [None]
